FAERS Safety Report 6971938-6 (Version None)
Quarter: 2010Q3

REPORT INFORMATION
  Report Type: 
  Country: None (occurrence: None)
  Receive Date: 20100908
  Receipt Date: 20100908
  Transmission Date: 20110219
  Serious: No
  Sender: FDA-Public Use
  Company Number: None

PATIENT
  Age: 40 Year
  Sex: Female
  Weight: 79.3795 kg

DRUGS (1)
  1. NEXIUM [Suspect]
     Indication: ULCER
     Dosage: 40MG BID PO
     Route: 048
     Dates: start: 20100825, end: 20100901

REACTIONS (1)
  - BURNING SENSATION [None]
